FAERS Safety Report 5127911-6 (Version None)
Quarter: 2006Q4

REPORT INFORMATION
  Report Type: 
  Country: None (occurrence: None)
  Receive Date: 20061011
  Receipt Date: 20060926
  Transmission Date: 20070319
  Serious: Yes (Death, Hospitalization, Other)
  Sender: FDA-Public Use
  Company Number: 2006AL002960

PATIENT
  Age: 90 Year
  Sex: Male

DRUGS (11)
  1. DICLOFENAC SODIUM [Suspect]
     Indication: ANALGESIC EFFECT
     Dosage: 50 MG; QD; PO
     Route: 048
     Dates: start: 20060712, end: 20060727
  2. AMIODARONE HCL [Concomitant]
  3. AMOXICILLIN [Concomitant]
  4. ASPIRIN [Concomitant]
  5. CALCIUM CARBONATE [Concomitant]
  6. CARBOCYSTEINE [Concomitant]
  7. FLUDROCORTISONE [Concomitant]
  8. LACTULOSE [Concomitant]
  9. LANSOPRAZOLE [Concomitant]
  10. ACETAMINOPHEN [Concomitant]
  11. SENNA [Concomitant]

REACTIONS (1)
  - GASTROINTESTINAL HAEMORRHAGE [None]
